FAERS Safety Report 7817093-1 (Version None)
Quarter: 2011Q4

REPORT INFORMATION
  Report Type: 
  Country: None (occurrence: None)
  Receive Date: 20111013
  Receipt Date: 20111003
  Transmission Date: 20120403
  Serious: Yes (Hospitalization)
  Sender: FDA-Public Use
  Company Number: 1069784

PATIENT
  Age: 17 Year
  Sex: Male

DRUGS (10)
  1. BUPIVACAINE HCL [Concomitant]
  2. ZEMURON [Concomitant]
  3. ISOFLURANE [Concomitant]
  4. LIDOCAINE HCL [Concomitant]
  5. EPINEPHRINE [Suspect]
     Indication: SHOULDER OPERATION
     Dosage: OTHER
  6. PROPOFOL [Concomitant]
  7. FENTANYL CITRATE [Concomitant]
  8. (NITROUS OXIDE) [Concomitant]
  9. SODIUM CHLORIDE INJ [Concomitant]
  10. (OXYGEN) [Concomitant]

REACTIONS (5)
  - POSTERIOR REVERSIBLE ENCEPHALOPATHY SYNDROME [None]
  - HYPERTENSION [None]
  - SINUS TACHYCARDIA [None]
  - EPILEPSY [None]
  - ACUTE RESPIRATORY DISTRESS SYNDROME [None]
